FAERS Safety Report 18139382 (Version 1)
Quarter: 2020Q3

REPORT INFORMATION
  Report Type: Spontaneous
  Country: US (occurrence: US)
  Receive Date: 20200812
  Receipt Date: 20200812
  Transmission Date: 20201103
  Serious: Yes (Death)
  Sender: FDA-Public Use
  Company Number: None

PATIENT
  Age: 88 Year
  Sex: Male
  Weight: 75.5 kg

DRUGS (6)
  1. REMDESIVIR. [Suspect]
     Active Substance: REMDESIVIR
     Indication: COVID-19
     Route: 041
     Dates: start: 20200804, end: 20200810
  2. DOXYCYCLINE. [Concomitant]
     Active Substance: DOXYCYCLINE
     Dates: start: 20200805, end: 20200810
  3. INSULIN [Concomitant]
     Active Substance: INSULIN NOS
     Dates: start: 20200804, end: 20200810
  4. REMDESIVIR. [Suspect]
     Active Substance: REMDESIVIR
     Indication: COVID-19
     Route: 041
     Dates: start: 20200804, end: 20200810
  5. FENTANYL. [Concomitant]
     Active Substance: FENTANYL
     Dates: start: 20200805, end: 20200810
  6. PROPOFOL. [Concomitant]
     Active Substance: PROPOFOL
     Dates: start: 20200805, end: 20200810

REACTIONS (1)
  - Death [None]

NARRATIVE: CASE EVENT DATE: 20200811
